FAERS Safety Report 5836894-2 (Version None)
Quarter: 2008Q3

REPORT INFORMATION
  Report Type: 
  Country: None (occurrence: None)
  Receive Date: 20080805
  Receipt Date: 20080714
  Transmission Date: 20090109
  Serious: Yes (Death)
  Sender: FDA-Public Use
  Company Number: 1-16401093

PATIENT
  Sex: Female
  Weight: 51.2565 kg

DRUGS (7)
  1. FENTANYL-75 [Suspect]
     Indication: BACK PAIN
     Dosage: 75 MCG EVERY 72 HRS, TRANSDERMAL
     Route: 062
     Dates: start: 20080101, end: 20080215
  2. FENTANYL-75 [Suspect]
     Indication: BACK PAIN
     Dosage: 75 MCG EVERY 72 HRS, TRANSDERMAL
     Route: 062
     Dates: start: 20070601, end: 20080101
  3. VICODIN (HYDROCODONE AND ACETAMINOPHEN) [Concomitant]
  4. CALCIUM [Concomitant]
  5. VITAMIN B [Concomitant]
  6. AN UNSPECIFIED MEDICATION FOR HYPERTENSION [Concomitant]
  7. AN UNSPECIFIED MEDICATION FOR A THYROID CONDITION [Concomitant]

REACTIONS (14)
  - ASPIRATION [None]
  - BLINDNESS UNILATERAL [None]
  - DISORIENTATION [None]
  - GASTRIC DISORDER [None]
  - HYPOPHAGIA [None]
  - HYPOVENTILATION [None]
  - MOBILITY DECREASED [None]
  - MOVEMENT DISORDER [None]
  - OVERDOSE [None]
  - PAIN IN EXTREMITY [None]
  - RENAL FAILURE [None]
  - RESPIRATORY DISORDER [None]
  - SMALL INTESTINAL OBSTRUCTION [None]
  - VOMITING [None]
